FAERS Safety Report 17181802 (Version 2)
Quarter: 2020Q1

REPORT INFORMATION
  Report Type: Report from Study
  Country: CO (occurrence: CO)
  Receive Date: 20191219
  Receipt Date: 20200109
  Transmission Date: 20200409
  Serious: Yes (Other)
  Sender: FDA-Public Use
  Company Number: CO-INCYTE CORPORATION-2019IN011932

PATIENT

DRUGS (2)
  1. JAKAVI [Suspect]
     Active Substance: RUXOLITINIB
     Indication: MYELOFIBROSIS
     Dosage: 20 MG, QD
     Route: 048
  2. JAKAVI [Suspect]
     Active Substance: RUXOLITINIB
     Dosage: 10 MG, QD
     Route: 048

REACTIONS (7)
  - Eating disorder [Unknown]
  - General physical health deterioration [Not Recovered/Not Resolved]
  - Weight decreased [Unknown]
  - Depressed mood [Unknown]
  - Platelet count decreased [Unknown]
  - General physical condition abnormal [Unknown]
  - Inappropriate schedule of product administration [Unknown]
